FAERS Safety Report 5244911-6 (Version None)
Quarter: 2007Q1

REPORT INFORMATION
  Report Type: 
  Country: None (occurrence: None)
  Receive Date: 20070221
  Receipt Date: 20070221
  Transmission Date: 20070707
  Serious: No
  Sender: FDA-Public Use
  Company Number: None

PATIENT
  Sex: Male
  Weight: 86.1834 kg

DRUGS (1)
  1. CAPZASIN HP [Suspect]
     Indication: ARTHRALGIA
     Dosage: PEA SIZE 1X
     Dates: start: 20060807

REACTIONS (2)
  - APPLICATION SITE IRRITATION [None]
  - ERYTHEMA [None]
